FAERS Safety Report 24781119 (Version 2)
Quarter: 2025Q1

REPORT INFORMATION
  Report Type: Report from Study
  Country: JP (occurrence: JP)
  Receive Date: 20241227
  Receipt Date: 20250325
  Transmission Date: 20250408
  Serious: Yes (Hospitalization, Other)
  Sender: TAKEDA
  Company Number: JP-TAKEDA-2022TJP078818

PATIENT
  Age: 53 Year
  Sex: Female
  Weight: 41 kg

DRUGS (23)
  1. TEDUGLUTIDE [Suspect]
     Active Substance: TEDUGLUTIDE
     Indication: Short-bowel syndrome
  2. TEDUGLUTIDE [Suspect]
     Active Substance: TEDUGLUTIDE
  3. TEDUGLUTIDE [Suspect]
     Active Substance: TEDUGLUTIDE
  4. TEDUGLUTIDE [Suspect]
     Active Substance: TEDUGLUTIDE
  5. BIO-THREE [Concomitant]
     Active Substance: HERBALS
     Indication: Short-bowel syndrome
  6. LOPEMIN [Concomitant]
     Indication: Short-bowel syndrome
  7. CODEINE PHOSPHATE [Concomitant]
     Active Substance: CODEINE PHOSPHATE
     Indication: Short-bowel syndrome
  8. AMINO ACIDS\CARBOHYDRATES\MINERALS\SOYBEAN OIL\VITAMINS [Concomitant]
     Active Substance: AMINO ACIDS\CARBOHYDRATES\MINERALS\SOYBEAN OIL\VITAMINS
     Indication: Short-bowel syndrome
  9. PENTASA [Concomitant]
     Active Substance: MESALAMINE
     Indication: Short-bowel syndrome
  10. Solita t granules no.3 [Concomitant]
     Indication: Short-bowel syndrome
  11. ZINC [Concomitant]
     Active Substance: ZINC
  12. HEPARINOID [Concomitant]
  13. CAMOSTAT MESYLATE [Concomitant]
     Active Substance: CAMOSTAT MESYLATE
  14. URSO [Concomitant]
     Active Substance: URSODIOL
  15. ALLOID G [Concomitant]
     Active Substance: SODIUM ALGINATE
  16. BONVIVA [Concomitant]
     Active Substance: IBANDRONATE SODIUM
  17. CALCIUM ASPARTATE [Concomitant]
     Active Substance: CALCIUM ASPARTATE
  18. ELDECALCITOL [Concomitant]
     Active Substance: ELDECALCITOL
  19. EVISTA [Concomitant]
     Active Substance: RALOXIFENE HYDROCHLORIDE
  20. CALCIUM GLUCONATE [Concomitant]
     Active Substance: CALCIUM GLUCONATE
  21. MAGNESIUM SULFATE [Concomitant]
     Active Substance: MAGNESIUM SULFATE
  22. EVENITY [Concomitant]
     Active Substance: ROMOSOZUMAB-AQQG
  23. ALFAROL [Concomitant]
     Active Substance: ALFACALCIDOL

REACTIONS (9)
  - Rib fracture [Recovered/Resolved]
  - Pneumothorax [Recovered/Resolved]
  - Neuropathy peripheral [Recovered/Resolved]
  - COVID-19 [Recovered/Resolved]
  - Weight decreased [Unknown]
  - Stomatitis [Recovered/Resolved]
  - Serum ferritin increased [Unknown]
  - Hypocalcaemia [Recovered/Resolved]
  - Hypomagnesaemia [Unknown]

NARRATIVE: CASE EVENT DATE: 20220101
